FAERS Safety Report 25649730 (Version 2)
Quarter: 2025Q4

REPORT INFORMATION
  Report Type: Spontaneous
  Country: JP (occurrence: JP)
  Receive Date: 20250806
  Receipt Date: 20251017
  Transmission Date: 20260118
  Serious: Yes (Hospitalization)
  Sender: CHIESI
  Company Number: JP-CHIESI-2025CHF05341

PATIENT
  Age: 50 Year
  Sex: Female

DRUGS (4)
  1. JUXTAPID [Suspect]
     Active Substance: LOMITAPIDE MESYLATE
     Indication: Type IIa hyperlipidaemia
     Dosage: UNK
     Route: 065
     Dates: start: 2017
  2. EZETIMIBE [Concomitant]
     Active Substance: EZETIMIBE
     Indication: Low density lipoprotein increased
     Dosage: UNK
  3. ATORVASTATIN CALCIUM [Concomitant]
     Active Substance: ATORVASTATIN CALCIUM
     Indication: Low density lipoprotein increased
     Dosage: UNK
  4. EVINACUMAB [Concomitant]
     Active Substance: EVINACUMAB
     Indication: Low density lipoprotein increased
     Dosage: UNK
     Dates: start: 2024

REACTIONS (1)
  - Angina unstable [Unknown]
